FAERS Safety Report 7835523-6 (Version None)
Quarter: 2011Q4

REPORT INFORMATION
  Report Type: 
  Country: None (occurrence: None)
  Receive Date: 20111024
  Receipt Date: 20111013
  Transmission Date: 20120403
  Serious: Yes (Other)
  Sender: FDA-Public Use
  Company Number: US-ASTRAZENECA-2011SE47649

PATIENT
  Age: 63 Year
  Sex: Female

DRUGS (1)
  1. CRESTOR [Suspect]
     Route: 048
     Dates: start: 20070401

REACTIONS (5)
  - MALAISE [None]
  - FRACTURED COCCYX [None]
  - ANKLE FRACTURE [None]
  - FOOT FRACTURE [None]
  - CONVULSION [None]
